FAERS Safety Report 18432277 (Version 1)
Quarter: 2020Q4

REPORT INFORMATION
  Report Type: Spontaneous
  Country: US (occurrence: US)
  Receive Date: 20201027
  Receipt Date: 20201027
  Transmission Date: 20210114
  Serious: Yes (Other)
  Sender: FDA-Public Use
  Company Number: US-MYLANLABS-2020M1090628

PATIENT
  Age: 75 Year
  Sex: Female

DRUGS (1)
  1. METHOTREXATE. [Suspect]
     Active Substance: METHOTREXATE
     Indication: POLYMYALGIA RHEUMATICA
     Route: 065

REACTIONS (5)
  - Tuberculosis [Recovering/Resolving]
  - Unresponsive to stimuli [Recovering/Resolving]
  - Mental disorder [Not Recovered/Not Resolved]
  - Tuberculosis of central nervous system [Recovering/Resolving]
  - Meningitis tuberculous [Recovering/Resolving]
